FAERS Safety Report 5779947-X (Version None)
Quarter: 2008Q2

REPORT INFORMATION
  Report Type: 
  Country: None (occurrence: None)
  Receive Date: 20080616
  Receipt Date: 20080408
  Transmission Date: 20081010
  Serious: Yes (Other)
  Sender: FDA-Public Use
  Company Number: 08-185

PATIENT
  Age: 71 Year
  Sex: Female
  Weight: 66.2252 kg

DRUGS (5)
  1. ALEVE [Suspect]
     Indication: PAIN
     Dosage: DAILY, ORAL
     Route: 048
  2. THYROID MEDICATION [Concomitant]
  3. STATIN [Concomitant]
  4. VITAMIN TAB [Concomitant]
  5. CALCIUM SUPPLEMENT [Concomitant]

REACTIONS (2)
  - GASTRITIS [None]
  - GASTROINTESTINAL INFLAMMATION [None]
